FAERS Safety Report 6356833-8 (Version None)
Quarter: 2009Q3

REPORT INFORMATION
  Report Type: 
  Country: None (occurrence: None)
  Receive Date: 20090910
  Receipt Date: 20090910
  Transmission Date: 20100115
  Serious: Yes (Life-Threatening, Other)
  Sender: FDA-Public Use
  Company Number: None

PATIENT
  Age: 54 Year
  Sex: Female
  Weight: 73.0291 kg

DRUGS (2)
  1. TRAMADOL HCL [Suspect]
     Indication: FIBROMYALGIA
     Dosage: EVERY 6 HOURS AS NEEDED
     Dates: start: 20090723, end: 20090809
  2. TRAMADOL HCL [Suspect]
     Indication: MENISCUS LESION
     Dosage: EVERY 6 HOURS AS NEEDED
     Dates: start: 20090723, end: 20090809

REACTIONS (2)
  - CONVULSION [None]
  - CONVULSIVE THRESHOLD LOWERED [None]
